FAERS Safety Report 11530220 (Version 1)
Quarter: 2015Q3

REPORT INFORMATION
  Report Type: Spontaneous
  Country: US (occurrence: US)
  Receive Date: 20150921
  Receipt Date: 20150921
  Transmission Date: 20151125
  Serious: Yes (Hospitalization, Other)
  Sender: FDA-Public Use
  Company Number: US-SMITH AND NEPHEW, INC-2015SMT00317

PATIENT
  Sex: Male

DRUGS (1)
  1. REGRANEX [Suspect]
     Active Substance: BECAPLERMIN
     Indication: WOUND
     Dosage: UNK, 1X/DAY
     Dates: start: 2015, end: 2015

REACTIONS (4)
  - Toe amputation [Unknown]
  - Off label use [Unknown]
  - Application site infection [Recovered/Resolved with Sequelae]
  - Hospitalisation [Unknown]

NARRATIVE: CASE EVENT DATE: 2015
